FAERS Safety Report 20091384 (Version 8)
Quarter: 2022Q3

REPORT INFORMATION
  Report Type: Spontaneous
  Country: JP (occurrence: JP)
  Receive Date: 20211119
  Receipt Date: 20220716
  Transmission Date: 20221026
  Serious: Yes (Death, Hospitalization, Other)
  Sender: FDA-Public Use
  Company Number: JP-ONO-2021JP029105

PATIENT
  Age: 81 Year
  Sex: Male
  Weight: 47.8 kg

DRUGS (10)
  1. OPDIVO [Suspect]
     Active Substance: NIVOLUMAB
     Indication: Oesophageal carcinoma
     Dosage: 240 MILLIGRAM
     Route: 041
     Dates: start: 20210914
  2. OPDIVO [Suspect]
     Active Substance: NIVOLUMAB
     Dosage: 2ND COURSE
     Route: 041
     Dates: start: 20210928
  3. OPDIVO [Suspect]
     Active Substance: NIVOLUMAB
     Dosage: 3RD COURSE
     Route: 041
     Dates: start: 20211012
  4. PREDONINE [Suspect]
     Active Substance: PREDNISOLONE
     Indication: Hypercapnia
     Dosage: 45 MILLIGRAM, QD
     Route: 048
     Dates: start: 20211102, end: 20211107
  5. PREDONINE [Suspect]
     Active Substance: PREDNISOLONE
     Indication: Myasthenia gravis
     Dosage: TAPERED DOWN TO 30 MG
     Route: 048
     Dates: start: 20211108
  6. PREDONINE [Suspect]
     Active Substance: PREDNISOLONE
     Indication: Myositis
     Dosage: 60 MG
     Route: 048
     Dates: start: 20211113
  7. ENORAS [Concomitant]
     Indication: Product used for unknown indication
     Dosage: UNK, ROUTE OF ADMINISTRATION: ENTERAL
     Route: 050
  8. ENORAS [Concomitant]
  9. ENORAS [Concomitant]
  10. AMLODIPINE [Concomitant]
     Active Substance: AMLODIPINE BESYLATE
     Indication: Product used for unknown indication
     Dosage: UNK
     Route: 065

REACTIONS (12)
  - Myasthenia gravis [Fatal]
  - Insomnia [Unknown]
  - Nausea [Unknown]
  - Malignant neoplasm progression [Fatal]
  - Hypercapnia [Unknown]
  - Delirium [Unknown]
  - Septic shock [Not Recovered/Not Resolved]
  - Myositis [Unknown]
  - Altered state of consciousness [Unknown]
  - Respiratory failure [Unknown]
  - Staphylococcal infection [Unknown]
  - Asthenia [Unknown]

NARRATIVE: CASE EVENT DATE: 20211026
